FAERS Safety Report 4408736-3 (Version None)
Quarter: 2004Q3

REPORT INFORMATION
  Report Type: 
  Country: None (occurrence: None)
  Receive Date: 20040727
  Receipt Date: 20040719
  Transmission Date: 20050211
  Serious: Yes (Hospitalization)
  Sender: FDA-Public Use
  Company Number: PHFR2004GB02889

PATIENT
  Age: 68 Year
  Sex: Female

DRUGS (1)
  1. SALAGEN [Suspect]
     Indication: APTYALISM
     Dosage: 30MG/DAY
     Route: 048
     Dates: start: 20040310, end: 20040325

REACTIONS (2)
  - CHOLESTASIS [None]
  - JAUNDICE [None]
